FAERS Safety Report 26068459 (Version 1)
Quarter: 2025Q4

REPORT INFORMATION
  Report Type: Spontaneous
  Country: GB (occurrence: GB)
  Receive Date: 20251120
  Receipt Date: 20251120
  Transmission Date: 20260117
  Serious: Yes (Other)
  Sender: MSN LABORATORIES PRIVATE LIMITED
  Company Number: None

PATIENT

DRUGS (2)
  1. ATORVASTATIN [Suspect]
     Active Substance: ATORVASTATIN
     Indication: Coronary artery bypass
     Dosage: 20 MG ONCE A DAY
     Route: 065
     Dates: start: 20230820, end: 20251031
  2. BISOPROLOL [Concomitant]
     Active Substance: BISOPROLOL
     Indication: Coronary artery bypass
     Route: 065
     Dates: start: 202406

REACTIONS (3)
  - Dry mouth [Recovered/Resolved]
  - Myalgia [Recovered/Resolved with Sequelae]
  - Muscle spasms [Recovered/Resolved with Sequelae]

NARRATIVE: CASE EVENT DATE: 20240429
